FAERS Safety Report 7133684-8 (Version None)
Quarter: 2010Q4

REPORT INFORMATION
  Report Type: 
  Country: None (occurrence: None)
  Receive Date: 20101202
  Receipt Date: 20101124
  Transmission Date: 20110411
  Serious: Yes (Hospitalization)
  Sender: FDA-Public Use
  Company Number: JP-BAYER-2010-000063

PATIENT

DRUGS (4)
  1. ACETYLSALICYLIC ACID SRT [Suspect]
     Indication: PULMONARY EMBOLISM
     Dosage: UNK
     Route: 048
     Dates: start: 20100401
  2. ACETYLSALICYLIC ACID SRT [Suspect]
     Indication: MYOCARDIAL ISCHAEMIA
  3. WARFARIN POTASSIUM [Suspect]
     Indication: PULMONARY EMBOLISM
     Dosage: UNK
     Route: 048
     Dates: start: 20100401
  4. WARFARIN POTASSIUM [Suspect]
     Indication: MYOCARDIAL ISCHAEMIA

REACTIONS (1)
  - UPPER GASTROINTESTINAL HAEMORRHAGE [None]
